FAERS Safety Report 5930600-9 (Version None)
Quarter: 2008Q4

REPORT INFORMATION
  Report Type: 
  Country: None (occurrence: None)
  Receive Date: 20081027
  Receipt Date: 20081016
  Transmission Date: 20090506
  Serious: Yes (Other)
  Sender: FDA-Public Use
  Company Number: US-JNJFOC-20081004609

PATIENT
  Sex: Male
  Weight: 128.37 kg

DRUGS (6)
  1. DURAGESIC-100 [Suspect]
     Indication: BACK PAIN
     Route: 062
  2. ASPIRIN [Concomitant]
     Indication: CHEST PAIN
     Route: 048
  3. NEXIUM [Concomitant]
     Indication: GASTROOESOPHAGEAL REFLUX DISEASE
     Route: 048
  4. TRAZODONE HCL [Concomitant]
     Indication: ANXIETY
     Route: 048
  5. CYMBALTA [Concomitant]
     Indication: DEPRESSION
     Route: 048
  6. SALSALATE [Concomitant]
     Indication: ARTHRITIS
     Route: 048

REACTIONS (3)
  - ARTHROPATHY [None]
  - ASTHMA [None]
  - INAPPROPRIATE SCHEDULE OF DRUG ADMINISTRATION [None]
